FAERS Safety Report 10842722 (Version 2)
Quarter: 2015Q2

REPORT INFORMATION
  Report Type: Spontaneous
  Country: FR (occurrence: FR)
  Receive Date: 20150220
  Receipt Date: 20150505
  Transmission Date: 20150821
  Serious: Yes (Hospitalization)
  Sender: FDA-Public Use
  Company Number: FR-TEVA-541022ISR

PATIENT
  Age: 18 Year
  Sex: Female

DRUGS (7)
  1. BETAMETHASONE [Suspect]
     Active Substance: BETAMETHASONE
     Indication: ODYNOPHAGIA
     Dosage: 2 MILLIGRAM DAILY;
     Route: 048
     Dates: start: 20150111, end: 20150111
  2. IBUPROFENE [Suspect]
     Active Substance: IBUPROFEN
     Indication: DYSMENORRHOEA
     Dosage: 400 MILLIGRAM DAILY;
     Route: 048
     Dates: start: 20150119, end: 20150119
  3. PIROXICAM. [Suspect]
     Active Substance: PIROXICAM
     Indication: JOINT STIFFNESS
     Dosage: 1 DOSAGE FORMS DAILY;
     Route: 048
     Dates: start: 20150117, end: 20150117
  4. LYSOPAINE [Concomitant]
     Active Substance: CETYLPYRIDINIUM CHLORIDE\LYSOZYME HYDROCHLORIDE
     Indication: THROAT IRRITATION
     Dates: start: 20130120, end: 20130123
  5. SOLUPRED [Concomitant]
     Active Substance: PREDNISOLONE
     Indication: APHTHOUS STOMATITIS
     Dosage: BY MOUTHWASH
     Dates: start: 20150121, end: 20150123
  6. LEELOO [Suspect]
     Active Substance: ETHINYL ESTRADIOL\LEVONORGESTREL
     Dosage: 1 DOSAGE FORMS DAILY;
     Route: 048
  7. FLUOXETINE TEVA [Suspect]
     Active Substance: FLUOXETINE HYDROCHLORIDE
     Route: 048
     Dates: start: 201410

REACTIONS (1)
  - Agranulocytosis [Not Recovered/Not Resolved]

NARRATIVE: CASE EVENT DATE: 20150123
